FAERS Safety Report 12181633 (Version 1)
Quarter: 2016Q1

REPORT INFORMATION
  Report Type: Spontaneous
  Country: US (occurrence: US)
  Receive Date: 20160315
  Receipt Date: 20160315
  Transmission Date: 20160526
  Serious: No
  Sender: FDA-Public Use
  Company Number: US-IMPAX LABORATORIES, INC-2015-IPXL-00993

PATIENT
  Sex: Female
  Weight: 70 kg

DRUGS (4)
  1. ALAVERT ALLERGY SINUS D-12 [Suspect]
     Active Substance: LORATADINE\PSEUDOEPHEDRINE SULFATE
     Indication: RHINORRHOEA
  2. ALAVERT ALLERGY SINUS D-12 [Suspect]
     Active Substance: LORATADINE\PSEUDOEPHEDRINE SULFATE
     Indication: HEADACHE
     Dosage: ONE TABLET ONCE, 1 /DAY
     Route: 065
  3. CLARITIN [Suspect]
     Active Substance: LORATADINE
     Indication: RHINORRHOEA
     Route: 065
  4. CLARITIN [Suspect]
     Active Substance: LORATADINE
     Indication: PRODUCTIVE COUGH

REACTIONS (4)
  - Rhinorrhoea [Not Recovered/Not Resolved]
  - Dizziness [Not Recovered/Not Resolved]
  - Productive cough [Not Recovered/Not Resolved]
  - Headache [Not Recovered/Not Resolved]
